FAERS Safety Report 7262219-4 (Version None)
Quarter: 2011Q1

REPORT INFORMATION
  Report Type: 
  Country: None (occurrence: None)
  Receive Date: 20110130
  Receipt Date: 20101113
  Transmission Date: 20110831
  Serious: No
  Sender: FDA-Public Use
  Company Number: US-ABBOTT-10P-163-0685422-00

PATIENT
  Age: 47 Year
  Sex: Female

DRUGS (4)
  1. HUMIRA [Suspect]
     Indication: CROHN'S DISEASE
     Dates: start: 20070701
  2. PROZAC [Concomitant]
     Indication: DEPRESSION
     Route: 048
  3. IMURAN [Concomitant]
     Indication: IMMUNOSUPPRESSION
     Route: 048
  4. UNKNOWN ADD MEDICATION [Concomitant]
     Indication: ATTENTION DEFICIT/HYPERACTIVITY DISORDER
     Route: 048

REACTIONS (5)
  - BLOOD CREATININE INCREASED [None]
  - HEADACHE [None]
  - FALL [None]
  - OROPHARYNGEAL PAIN [None]
  - THROAT IRRITATION [None]
